FAERS Safety Report 6703763-5 (Version None)
Quarter: 2010Q2

REPORT INFORMATION
  Report Type: 
  Country: None (occurrence: None)
  Receive Date: 20100430
  Receipt Date: 20100419
  Transmission Date: 20101027
  Serious: Yes (Life-Threatening, Hospitalization, Disabling)
  Sender: FDA-Public Use
  Company Number: DK-JNJFOC-20100405952

PATIENT
  Sex: Male
  Weight: 90 kg

DRUGS (7)
  1. REMICADE [Suspect]
     Indication: PSORIASIS
     Route: 042
  2. IMDUR [Concomitant]
  3. MAGNYL [Concomitant]
  4. AMITRIPTYLINE HCL [Concomitant]
  5. METFORMIN HCL [Concomitant]
  6. IMUREL [Concomitant]
  7. TRAMADOL HCL [Concomitant]

REACTIONS (2)
  - AORTITIS [None]
  - CEREBROVASCULAR ACCIDENT [None]
